FAERS Safety Report 19661124 (Version 1)
Quarter: 2021Q3

REPORT INFORMATION
  Report Type: Spontaneous
  Country: US (occurrence: US)
  Receive Date: 20210805
  Receipt Date: 20210805
  Transmission Date: 20211014
  Serious: No
  Sender: FDA-Public Use
  Company Number: None

PATIENT

DRUGS (1)
  1. OZOBAX [Suspect]
     Active Substance: BACLOFEN

REACTIONS (1)
  - Circumstance or information capable of leading to device use error [None]
